FAERS Safety Report 10146734 (Version 3)
Quarter: 2014Q2

REPORT INFORMATION
  Report Type: Report from Study
  Country: US (occurrence: US)
  Receive Date: 20140501
  Receipt Date: 20140509
  Transmission Date: 20141212
  Serious: Yes (Death, Disabling)
  Sender: FDA-Public Use
  Company Number: US-B.I. PHARMACEUTICALS,INC./RIDGEFIELD-2014-BI-13200BI

PATIENT
  Age: 79 Year
  Sex: Male

DRUGS (17)
  1. GILOTRIF [Suspect]
     Indication: NON-SMALL CELL LUNG CANCER
     Dosage: 40 MG
     Route: 048
     Dates: start: 20140319, end: 20140403
  2. GILOTRIF [Suspect]
     Dosage: 30 MG
     Route: 048
     Dates: start: 20140319
  3. GILOTRIF [Suspect]
     Dosage: 30 MG
     Route: 048
     Dates: start: 20140410
  4. TARCEVA [Concomitant]
     Route: 065
  5. GABAPENTIN [Concomitant]
     Route: 065
  6. ASA [Concomitant]
     Route: 065
  7. MIRTAZIPINE [Concomitant]
     Route: 065
  8. OMEPRAZOLE [Concomitant]
     Route: 065
  9. FLOMAX GENERIC [Concomitant]
     Route: 065
  10. FOLIC ACID [Concomitant]
     Route: 065
  11. DILTIAZEM [Concomitant]
     Route: 065
  12. VITAMIN B12 [Concomitant]
     Route: 065
  13. VITAMIN B6 [Concomitant]
     Route: 065
  14. VITAMIN D3 [Concomitant]
     Route: 065
  15. DICLOFENAC EYE GTTS [Concomitant]
     Route: 065
  16. VITAMIN C [Concomitant]
     Route: 065
  17. IMODIUM [Concomitant]
     Route: 065

REACTIONS (10)
  - Death [Fatal]
  - Diarrhoea [Not Recovered/Not Resolved]
  - Fatigue [Not Recovered/Not Resolved]
  - Asthenia [Not Recovered/Not Resolved]
  - Wound [Not Recovered/Not Resolved]
  - Rash [Not Recovered/Not Resolved]
  - Nausea [Not Recovered/Not Resolved]
  - Retching [Not Recovered/Not Resolved]
  - Decreased appetite [Not Recovered/Not Resolved]
  - Fatigue [Not Recovered/Not Resolved]
